FAERS Safety Report 25314847 (Version 1)
Quarter: 2025Q2

REPORT INFORMATION
  Report Type: Spontaneous
  Country: CN (occurrence: CN)
  Receive Date: 20250514
  Receipt Date: 20250514
  Transmission Date: 20250717
  Serious: Yes (Hospitalization, Other)
  Sender: MERCK SHARP & DOHME LLC
  Company Number: CN-009507513-2283962

PATIENT
  Age: 33 Year
  Sex: Male

DRUGS (1)
  1. STEGLATRO [Suspect]
     Active Substance: ERTUGLIFLOZIN PIDOLATE
     Indication: Diabetes mellitus
     Dosage: 5MG, QD
     Route: 048
     Dates: start: 20250419, end: 20250422

REACTIONS (5)
  - Diabetic ketosis [Recovered/Resolved]
  - Electrocardiogram T wave amplitude decreased [Unknown]
  - Heart rate abnormal [Unknown]
  - Electrocardiogram T wave inversion [Unknown]
  - Blood pressure abnormal [Unknown]

NARRATIVE: CASE EVENT DATE: 20250421
